FAERS Safety Report 9339325 (Version 5)
Quarter: 2013Q3

REPORT INFORMATION
  Report Type: Spontaneous
  Country: JP (occurrence: JP)
  Receive Date: 20130610
  Receipt Date: 20130806
  Transmission Date: 20140515
  Serious: Yes (Death, Hospitalization, Other)
  Sender: FDA-Public Use
  Company Number: PHHY2013JP057872

PATIENT
  Age: 74 Year
  Sex: Female
  Weight: 58 kg

DRUGS (9)
  1. SANDOSTATIN LAR [Suspect]
     Indication: ECTOPIC ACTH SYNDROME
     Dosage: 20 MG, MONTHLY
     Route: 030
     Dates: start: 2006
  2. SANDOSTATIN LAR [Suspect]
     Dosage: 20 MG, MONTHLY
     Route: 030
     Dates: end: 20071225
  3. SANDOSTATIN LAR [Suspect]
     Dosage: 20 MG, MONTHLY
     Route: 030
     Dates: start: 20080214, end: 20130502
  4. NORVASC [Concomitant]
     Indication: HYPERTENSION
     Dosage: UNK UKN, UNK
     Route: 048
     Dates: start: 200601, end: 20130506
  5. MEVALOTIN [Concomitant]
     Indication: HYPERLIPIDAEMIA
     Dosage: 10 MG, UNK
     Route: 048
     Dates: start: 20060314, end: 20130506
  6. LOXONIN [Concomitant]
     Indication: ANALGESIC THERAPY
     Dosage: 180 MG, UNK
     Route: 048
     Dates: start: 20060411, end: 20130506
  7. GASPORT [Concomitant]
     Dosage: 10 MG, UNK
     Dates: start: 20080214, end: 20130506
  8. PENTAGIN [Concomitant]
     Dosage: UNK UKN, UNK
     Dates: start: 20130508
  9. DORMICUM                                /GFR/ [Concomitant]
     Dosage: UNK UKN, UNK
     Dates: start: 20130508

REACTIONS (8)
  - Pancreatitis acute [Fatal]
  - Multi-organ failure [Fatal]
  - Abdominal pain lower [Not Recovered/Not Resolved]
  - Abdominal discomfort [Unknown]
  - Vomiting [Not Recovered/Not Resolved]
  - Malaise [Unknown]
  - Loss of consciousness [Unknown]
  - Urine output decreased [Unknown]
